APPROVED DRUG PRODUCT: ANGELIQ
Active Ingredient: DROSPIRENONE; ESTRADIOL
Strength: 0.25MG;0.5MG
Dosage Form/Route: TABLET;ORAL
Application: N021355 | Product #001
Applicant: BAYER HEALTHCARE PHARMACEUTICALS INC
Approved: Feb 29, 2012 | RLD: Yes | RS: No | Type: RX

PATENTS:
Patent 8906890 | Expires: Oct 22, 2031